FAERS Safety Report 6539957-1 (Version None)
Quarter: 2010Q1

REPORT INFORMATION
  Report Type: 
  Country: None (occurrence: None)
  Receive Date: 20100115
  Receipt Date: 20100104
  Transmission Date: 20100710
  Serious: Yes (Other)
  Sender: FDA-Public Use
  Company Number: ES-WYE-H12896010

PATIENT
  Age: 52 Year
  Sex: Female

DRUGS (6)
  1. PANTECTA [Suspect]
     Indication: PROPHYLAXIS
     Route: 048
     Dates: start: 20091104, end: 20091105
  2. POLARAMINE [Suspect]
     Indication: PREMEDICATION
     Dates: start: 20091104, end: 20091105
  3. MABTHERA [Suspect]
     Indication: THROMBOCYTOPENIA
     Route: 042
     Dates: start: 20091104, end: 20091105
  4. PERFALGAN [Suspect]
     Indication: PREMEDICATION
     Route: 042
     Dates: start: 20091104, end: 20091105
  5. HYDROCORTISONE SODIUM PHOSPHATE [Suspect]
     Indication: PREMEDICATION
     Route: 042
     Dates: start: 20091104, end: 20091105
  6. ADIRO [Suspect]
     Indication: PROPHYLAXIS
     Route: 048
     Dates: start: 20091104, end: 20091105

REACTIONS (1)
  - PAROTITIS [None]
